FAERS Safety Report 19089019 (Version 2)
Quarter: 2021Q2

REPORT INFORMATION
  Report Type: Report from Study
  Country: KE (occurrence: KE)
  Receive Date: 20210403
  Receipt Date: 20210512
  Transmission Date: 20210717
  Serious: Yes (Death, Hospitalization, Other)
  Sender: FDA-Public Use
  Company Number: KE-CIPLA LTD.-2021KE02442

PATIENT

DRUGS (4)
  1. ABACAVIR/LAMIVUDINE [Suspect]
     Active Substance: ABACAVIR\LAMIVUDINE
     Indication: HIV INFECTION
     Dosage: 1.5 DOSAGE FORM, BID (90 MG/45MG, BID)
     Route: 048
     Dates: start: 20160314, end: 20160613
  2. LOPINAVIR/RITONAVIR [Suspect]
     Active Substance: LOPINAVIR\RITONAVIR
     Indication: HIV INFECTION
     Dosage: 3 DOSAGE FORM, BID (120 MG/30 MG TWICE DAILY)
     Route: 048
     Dates: start: 20160314, end: 20160613
  3. CEFUROXIME. [Concomitant]
     Active Substance: CEFUROXIME
     Indication: OTITIS MEDIA
     Dosage: 125 MILLIGRAM, BID
     Route: 065
     Dates: start: 20160328
  4. AMOXICILLIN/CLAVULANIC ACID [Concomitant]
     Active Substance: AMOXICILLIN\CLAVULANIC ACID
     Indication: PNEUMONIA
     Dosage: 228 MILLIGRAM, BID
     Route: 065
     Dates: start: 20160314

REACTIONS (1)
  - Meningitis bacterial [None]

NARRATIVE: CASE EVENT DATE: 20160531
